FAERS Safety Report 8762176 (Version 1)
Quarter: 2012Q4

REPORT INFORMATION
  Report Type: 
  Country: US (occurrence: US)
  Receive Date: 20120830
  Receipt Date: 20120830
  Transmission Date: 20130627
  Serious: No
  Sender: FDA-Public Use
  Company Number: US-PFIZER INC-2012212816

PATIENT
  Age: 36 Year
  Sex: Female
  Weight: 62.13 kg

DRUGS (5)
  1. NEURONTIN [Suspect]
     Indication: FIBROMYALGIA
     Dosage: 600 mg, UNK
  2. NEURONTIN [Suspect]
     Indication: HEADACHE
  3. KLONOPIN [Concomitant]
     Indication: ANXIETY
     Dosage: 2 mg, 2x/day
  4. ASPIRIN ^BAYER^ [Concomitant]
     Indication: CARDIAC DISORDER
     Dosage: 81 mg, UNK
  5. MULTIVITAMINS [Concomitant]
     Dosage: UNK

REACTIONS (2)
  - Restless legs syndrome [Unknown]
  - Off label use [Unknown]
